FAERS Safety Report 8154834-0 (Version None)
Quarter: 2012Q1

REPORT INFORMATION
  Report Type: 
  Country: None (occurrence: None)
  Receive Date: 20120221
  Receipt Date: 20120214
  Transmission Date: 20120608
  Serious: Yes (Other)
  Sender: FDA-Public Use
  Company Number: PHEH2012US003781

PATIENT
  Sex: Male
  Weight: 99.773 kg

DRUGS (9)
  1. OXYCODONE HYDROCHLORIDE [Suspect]
     Dosage: ^7.5MG/325 MG^, PRN
     Route: 060
  2. VITAMINS NOS [Suspect]
     Indication: MEDICAL DIET
  3. HYOSCYAMINE [Suspect]
     Indication: OESOPHAGEAL DISORDER
     Dosage: 0.125 MG, PRN
     Route: 060
  4. DIOVAN [Suspect]
     Indication: BLOOD PRESSURE
     Dosage: 160 MG, BID
  5. CIALIS [Suspect]
     Indication: PERIPHERAL VASCULAR DISORDER
     Dosage: 1 DF(UNK),DAILY
     Route: 048
     Dates: start: 20110301, end: 20110401
  6. VIAGRA [Suspect]
     Indication: PERIPHERAL VASCULAR DISORDER
     Dosage: 100 MG, PRN
     Route: 048
     Dates: start: 20110301, end: 20110401
  7. CRANBERRY [Suspect]
     Indication: RENAL DISORDER
     Dosage: 450 MG, DAILY
  8. ALLOPURINOL TAB [Suspect]
     Indication: GOUT
     Dosage: 300 MG, DAILY
  9. ALPRAZOLAM [Suspect]
     Dosage: 5 DF (0.5 MG), DAILY (2 IN THE MORNING + 1 AFTERNOON + 1 BED NIGHT)
     Route: 048

REACTIONS (5)
  - ARTHRITIS [None]
  - HERPES ZOSTER [None]
  - VISION BLURRED [None]
  - OEDEMA PERIPHERAL [None]
  - RENAL FUNCTION TEST ABNORMAL [None]
